FAERS Safety Report 23066093 (Version 2)
Quarter: 2023Q4

REPORT INFORMATION
  Report Type: Report from Study
  Country: GB (occurrence: GB)
  Receive Date: 20231014
  Receipt Date: 20231106
  Transmission Date: 20240110
  Serious: Yes (Hospitalization)
  Sender: FDA-Public Use
  Company Number: GB-SUN PHARMACEUTICAL INDUSTRIES LTD-2023RR-410793

PATIENT
  Age: 80 Year
  Sex: Male

DRUGS (8)
  1. WARFARIN [Suspect]
     Active Substance: WARFARIN
     Indication: Atrial fibrillation
     Dosage: 2 MILLIGRAM DAILY; 2 MILLIGRAM, QD,
     Route: 048
     Dates: start: 20230904
  2. WARFARIN [Suspect]
     Active Substance: WARFARIN
     Dosage: 1-2 MG
     Route: 065
     Dates: start: 202211, end: 20230901
  3. BISOPROLOL [Concomitant]
     Active Substance: BISOPROLOL\BISOPROLOL FUMARATE
     Indication: Cardiac amyloidosis
     Dosage: 3.75 MILLIGRAM DAILY; 3.75 MILLIGRAM, QD
     Route: 048
     Dates: start: 2019
  4. COCODAMOL [Concomitant]
     Active Substance: ACETAMINOPHEN\CODEINE PHOSPHATE
     Indication: Osteoarthritis
     Dosage: 2 DOSAGE FORM, PRN
     Route: 048
     Dates: start: 20220505
  5. COLCHICINE [Concomitant]
     Active Substance: COLCHICINE
     Indication: Gout
     Dosage: 500 MICROGRAM, PRN
     Route: 048
     Dates: start: 2019
  6. FUROSEMIDE [Concomitant]
     Active Substance: FUROSEMIDE
     Indication: Cardiac amyloidosis
     Dosage: 80 MILLIGRAM DAILY; 80 MILLIGRAM, QD
     Route: 048
     Dates: start: 20211119
  7. OMEPRAZOLE [Concomitant]
     Active Substance: OMEPRAZOLE
     Indication: Gastrooesophageal reflux disease
     Dosage: 20 MILLIGRAM, PRN
     Route: 048
     Dates: start: 2010
  8. QUININE [Concomitant]
     Active Substance: QUININE
     Indication: Restless legs syndrome
     Dosage: 1 DOSAGE FORM, PRN
     Route: 048

REACTIONS (1)
  - Epistaxis [Recovered/Resolved]

NARRATIVE: CASE EVENT DATE: 20230903
